FAERS Safety Report 15738143 (Version 1)
Quarter: 2018Q4

REPORT INFORMATION
  Report Type: Spontaneous
  Country: US (occurrence: US)
  Receive Date: 20181219
  Receipt Date: 20181219
  Transmission Date: 20190205
  Serious: No
  Sender: FDA-Public Use
  Company Number: US-LUPIN PHARMACEUTICALS INC.-2018-08434

PATIENT
  Age: 57 Year
  Sex: Male

DRUGS (5)
  1. TOPIRAMATE. [Concomitant]
     Active Substance: TOPIRAMATE
     Indication: MYOFASCIAL PAIN SYNDROME
     Dosage: 80 MG, BID (EVERY 12 HOUR)
     Route: 065
  2. GABAPENTIN. [Suspect]
     Active Substance: GABAPENTIN
     Indication: MYOFASCIAL PAIN SYNDROME
     Dosage: 300 MG, TID  (EVERY 8 HOURS)
     Route: 065
  3. METHOCARBAMOL. [Concomitant]
     Active Substance: METHOCARBAMOL
     Indication: MYOFASCIAL PAIN SYNDROME
     Dosage: 750 MG, TID (EVERY 8 HOUR)
     Route: 065
  4. DICLOFENAC [Concomitant]
     Active Substance: DICLOFENAC
     Indication: MYOFASCIAL PAIN SYNDROME
     Dosage: 50 MG, BID (EVERY 12 HOUR)
     Route: 065
  5. DESIPRAMINE [Concomitant]
     Active Substance: DESIPRAMINE
     Indication: MYOFASCIAL PAIN SYNDROME
     Dosage: 10 MG, QD (NIGHTLY)
     Route: 065

REACTIONS (2)
  - Abnormal dreams [Unknown]
  - Sensory disturbance [Unknown]
